FAERS Safety Report 5189043-0 (Version None)
Quarter: 2006Q4

REPORT INFORMATION
  Report Type: 
  Country: None (occurrence: None)
  Receive Date: 20061215
  Receipt Date: 20061201
  Transmission Date: 20070319
  Serious: Yes (Hospitalization)
  Sender: FDA-Public Use
  Company Number: 2006BH007684

PATIENT
  Age: 59 Year
  Sex: Female
  Weight: 89.9 kg

DRUGS (17)
  1. EXTRANEAL [Suspect]
     Indication: PERITONEAL DIALYSIS
     Dosage: 2000 ML; EVERY DAY; IP
     Route: 033
     Dates: start: 20040920
  2. PHYSIOSOL IN PLASTIC CONTAINER [Suspect]
     Indication: PERITONEAL DIALYSIS
     Dosage: SEE IMAGE
     Route: 033
     Dates: start: 20040920
  3. PHYSIOSOL IN PLASTIC CONTAINER [Suspect]
     Indication: PERITONEAL DIALYSIS
     Dosage: SEE IMAGE
     Route: 033
     Dates: start: 20040920
  4. METOPROLOL SUCCINATE [Concomitant]
  5. AMLODIPINE [Concomitant]
  6. FUROSEMIDE [Concomitant]
  7. ASPIRIN [Concomitant]
  8. CALCITRIOL [Concomitant]
  9. INSUMAN COMB 25 [Concomitant]
  10. CANDESARTAN [Concomitant]
  11. MOLSIDOMINE [Concomitant]
  12. OMEPRAZOLE [Concomitant]
  13. FERRO ^SANOL^ [Concomitant]
  14. SIMVASTATIN [Concomitant]
  15. CALCIUM ACETATE [Concomitant]
  16. RENAGEL [Concomitant]
  17. HYDROCHLOROTHIAZIDE [Concomitant]

REACTIONS (6)
  - ABDOMINAL PAIN [None]
  - CEREBROVASCULAR ACCIDENT [None]
  - NAUSEA [None]
  - PERITONITIS [None]
  - VOMITING [None]
  - WHITE BLOOD CELL COUNT INCREASED [None]
